FAERS Safety Report 4777097-2 (Version None)
Quarter: 2005Q3

REPORT INFORMATION
  Report Type: 
  Country: None (occurrence: None)
  Receive Date: 20050923
  Receipt Date: 20041117
  Transmission Date: 20060218
  Serious: No
  Sender: FDA-Public Use
  Company Number: US-JNJFOC-20041104724

PATIENT
  Sex: Female
  Weight: 57.15 kg

DRUGS (1)
  1. ORTHO TRI-CYCLEN [Suspect]
     Indication: ACNE
     Route: 048

REACTIONS (1)
  - THERAPEUTIC PRODUCT INEFFECTIVE [None]
